FAERS Safety Report 6402926-6 (Version None)
Quarter: 2009Q4

REPORT INFORMATION
  Report Type: 
  Country: None (occurrence: None)
  Receive Date: 20091014
  Receipt Date: 20091014
  Transmission Date: 20100525
  Serious: Yes (Other)
  Sender: FDA-Public Use
  Company Number: None

PATIENT
  Sex: Female
  Weight: 231 kg

DRUGS (2)
  1. LISINOPRIL [Suspect]
     Indication: WEIGHT
     Dosage: 20 MG 1 X A DAY
     Dates: start: 20070701
  2. HYDROCOLORZINE [Suspect]
     Indication: MIGRAINE
     Dosage: 125 MG 1X A DAY
     Dates: start: 20070701

REACTIONS (5)
  - CONSTIPATION [None]
  - FATIGUE [None]
  - PARAESTHESIA [None]
  - SENSORY DISTURBANCE [None]
  - VISION BLURRED [None]
